FAERS Safety Report 22606905 (Version 6)
Quarter: 2023Q4

REPORT INFORMATION
  Report Type: Report from Study
  Country: US (occurrence: US)
  Receive Date: 20230615
  Receipt Date: 20231027
  Transmission Date: 20240110
  Serious: No
  Sender: FDA-Public Use
  Company Number: US-002147023-NVSC2023US135908

PATIENT
  Sex: Female

DRUGS (1)
  1. KESIMPTA [Suspect]
     Active Substance: OFATUMUMAB
     Indication: Product used for unknown indication
     Dosage: UNK
     Route: 065

REACTIONS (8)
  - Feeling cold [Unknown]
  - Pain in extremity [Unknown]
  - Gait disturbance [Unknown]
  - Insomnia [Unknown]
  - Vomiting [Unknown]
  - Motion sickness [Unknown]
  - Dizziness [Unknown]
  - Memory impairment [Unknown]
